FAERS Safety Report 25016439 (Version 3)
Quarter: 2025Q1

REPORT INFORMATION
  Report Type: Spontaneous
  Country: AU (occurrence: AU)
  Receive Date: 20250227
  Receipt Date: 20250322
  Transmission Date: 20250409
  Serious: Yes (Death, Hospitalization)
  Sender: ROCHE
  Company Number: AU-ROCHE-10000218224

PATIENT
  Age: 68 Year
  Sex: Female

DRUGS (18)
  1. EVRYSDI [Suspect]
     Active Substance: RISDIPLAM
     Indication: Product used for unknown indication
     Route: 048
     Dates: start: 2024, end: 20250222
  2. DEXTROSE [Concomitant]
     Active Substance: DEXTROSE MONOHYDRATE
  3. GLUCAGON [Concomitant]
     Active Substance: GLUCAGON
  4. BUPRENORPHINE [Concomitant]
     Active Substance: BUPRENORPHINE
     Dosage: 5 MCG
     Route: 050
  5. MIRTAZAPINE [Concomitant]
     Active Substance: MIRTAZAPINE
     Dates: end: 20250223
  6. OXYBUTYNIN [Concomitant]
     Active Substance: OXYBUTYNIN
     Dates: end: 20250223
  7. USTEKINUMAB [Concomitant]
     Active Substance: USTEKINUMAB
     Route: 058
     Dates: end: 20250206
  8. ENOXAPARIN [Concomitant]
     Active Substance: ENOXAPARIN
     Dates: start: 20250214, end: 20250223
  9. CEFAZOLIN [Concomitant]
     Active Substance: CEFAZOLIN
     Dates: start: 20250213
  10. CEFTRIAXONE [Concomitant]
     Active Substance: CEFTRIAXONE
     Route: 042
     Dates: start: 20250219, end: 20250222
  11. METRONIDAZOLE [Concomitant]
     Active Substance: METRONIDAZOLE
     Dates: start: 20250219
  12. ACETAMINOPHEN [Concomitant]
     Active Substance: ACETAMINOPHEN
     Dates: start: 20250213, end: 20250222
  13. PANTOPRAZOLE [Concomitant]
     Active Substance: PANTOPRAZOLE
     Dates: start: 20250216, end: 20250219
  14. MEROPENEM [Concomitant]
     Active Substance: MEROPENEM
     Dates: start: 20250222, end: 20250223
  15. PIPERACILLIN [Concomitant]
     Active Substance: PIPERACILLIN
     Dates: start: 20250222, end: 20250222
  16. VANCOMYCIN [Concomitant]
     Active Substance: VANCOMYCIN
     Dates: start: 20250222, end: 20250222
  17. MORPHINE [Concomitant]
     Active Substance: MORPHINE
  18. NALOXONE [Concomitant]
     Active Substance: NALOXONE

REACTIONS (10)
  - Upper gastrointestinal haemorrhage [Fatal]
  - Respiratory distress [Fatal]
  - Hepatitis [Fatal]
  - Respiratory failure [Fatal]
  - Sepsis [Fatal]
  - Gastritis [Fatal]
  - Hypokalaemia [Unknown]
  - Hypotension [Unknown]
  - Toxicity to various agents [Unknown]
  - Hypoglycaemia [Unknown]

NARRATIVE: CASE EVENT DATE: 20250219
